FAERS Safety Report 18969439 (Version 1)
Quarter: 2021Q1

REPORT INFORMATION
  Report Type: Spontaneous
  Country: US (occurrence: US)
  Receive Date: 20210304
  Receipt Date: 20210304
  Transmission Date: 20210420
  Serious: Yes (Other)
  Sender: FDA-Public Use
  Company Number: US-IPSEN BIOPHARMACEUTICALS, INC.-2021-05391

PATIENT
  Age: 19 Year
  Sex: Female
  Weight: 45 kg

DRUGS (2)
  1. DYSPORT [Suspect]
     Active Substance: ABOBOTULINUMTOXINA
     Indication: MUSCLE SPASTICITY
     Dosage: 1000 IU (BILATERAL PECS? 250 UNITS EACH AND BILATERAL HIP FLEXORS? 250 UNITS EACH)
     Route: 065
     Dates: start: 20210217, end: 20210217
  2. DYSPORT [Suspect]
     Active Substance: ABOBOTULINUMTOXINA
     Indication: MUSCLE SPASTICITY

REACTIONS (4)
  - Neuromuscular toxicity [Unknown]
  - Drooling [Unknown]
  - Muscular weakness [Unknown]
  - Eyelid ptosis [Unknown]

NARRATIVE: CASE EVENT DATE: 20210219
